FAERS Safety Report 9601689 (Version 2)
Quarter: 2016Q2

REPORT INFORMATION
  Report Type: Report from Study
  Country: US (occurrence: US)
  Receive Date: 20131007
  Receipt Date: 20160520
  Transmission Date: 20160815
  Serious: Yes (Hospitalization, Other)
  Sender: FDA-Public Use
  Company Number: US-ROCHE-1284945

PATIENT
  Age: 55 Year
  Sex: Female

DRUGS (23)
  1. XOLAIR [Suspect]
     Active Substance: OMALIZUMAB
     Indication: ASTHMA
     Route: 058
     Dates: start: 2003, end: 200906
  2. EPIPEN [Concomitant]
     Active Substance: EPINEPHRINE
     Dosage: 0.3 MG/0.3 ML DEVICE, AS NEEDED FOR ALLERGIES
     Route: 030
  3. VIACTIV [Concomitant]
     Active Substance: CALCIUM\VITAMIN D\VITAMIN K5
     Dosage: ^500-100-40 MG-UNT-MCG CHEWABLE^
     Route: 048
  4. UNISOM (DOXYLAMINE) [Concomitant]
     Dosage: ^AT BEDTIME^
     Route: 048
  5. PRAVASTATIN SODIUM. [Concomitant]
     Active Substance: PRAVASTATIN SODIUM
     Dosage: ^EACH EVENING^
     Route: 048
  6. PREDNISONE. [Concomitant]
     Active Substance: PREDNISONE
     Dosage: 3 PILLS
     Route: 065
  7. LASIX [Concomitant]
     Active Substance: FUROSEMIDE
     Route: 048
  8. AMBIEN [Concomitant]
     Active Substance: ZOLPIDEM TARTRATE
     Dosage: ^TAKE ONE TABLET AT BEDTIME AS NEEDED FOR SLEEPLES
     Route: 048
  9. XOLAIR [Suspect]
     Active Substance: OMALIZUMAB
     Route: 058
  10. THEOPHYLLINE SR [Concomitant]
     Active Substance: THEOPHYLLINE ANHYDROUS
     Dosage: ^TAKE 3, 2 IN THE MORNING AND 1 IN THE PM^
     Route: 048
  11. TRADJENTA [Concomitant]
     Active Substance: LINAGLIPTIN
     Route: 048
  12. DUONEB [Concomitant]
     Active Substance: ALBUTEROL SULFATE\IPRATROPIUM BROMIDE
     Dosage: 2.5-0.5 MG/3ML SOLUTION - INHALE 3 ML BY NEBULIZATION AS NEEDED FOR WHEEZING
     Route: 055
  13. MELATONIN [Concomitant]
     Active Substance: MELATONIN
  14. ALVESCO [Concomitant]
     Active Substance: CICLESONIDE
     Dosage: 160 MCG/ACT AERO SOLUTION - 2 INHALATION BY INHALATION
     Route: 055
  15. CYANOCOBALAMIN. [Concomitant]
     Active Substance: CYANOCOBALAMIN
     Dosage: 1000 MCG/ML SOLUTION, INJECT ONE ML
     Route: 030
  16. PROVENTIL HFA [Concomitant]
     Active Substance: ALBUTEROL SULFATE
     Dosage: ^90 MCG/PER ACT AERO SOLUTION^
     Route: 055
  17. K-DUR [Concomitant]
     Active Substance: POTASSIUM CHLORIDE
     Dosage: 2 TABLETS IN AM, 1 TABLET IN PM
     Route: 065
  18. ALLEGRA [Concomitant]
     Active Substance: FEXOFENADINE HYDROCHLORIDE
     Route: 048
  19. PROVENTIL HFA [Concomitant]
     Active Substance: ALBUTEROL SULFATE
     Dosage: 90 MCG/PER ACT AERO SOLUTION -  INHALE 2 PUFFS AS NEEDED FOR WHEEZING
     Route: 055
  20. ADVAIR HFA [Concomitant]
     Active Substance: FLUTICASONE PROPIONATE\SALMETEROL XINAFOATE
     Dosage: 500/50, ONE INHALATION
     Route: 048
  21. CHOLECALCIFEROL [Concomitant]
     Active Substance: CHOLECALCIFEROL
     Dosage: 2000 UNITS
     Route: 048
  22. TYLENOL PM [Concomitant]
     Active Substance: ACETAMINOPHEN\DIPHENHYDRAMINE
     Dosage: ^TAKE 4 TABLETS^
     Route: 048
  23. SINGULAIR [Concomitant]
     Active Substance: MONTELUKAST SODIUM
     Route: 048

REACTIONS (3)
  - Anaphylactic reaction [Unknown]
  - Laryngospasm [Unknown]
  - Asthma [Unknown]

NARRATIVE: CASE EVENT DATE: 200906
